FAERS Safety Report 13592361 (Version 4)
Quarter: 2017Q2

REPORT INFORMATION
  Report Type: Spontaneous
  Country: IT (occurrence: IT)
  Receive Date: 20170530
  Receipt Date: 20170619
  Transmission Date: 20170830
  Serious: Yes (Hospitalization)
  Sender: FDA-Public Use
  Company Number: IT-BAUSCH-BL-2017-017236

PATIENT
  Age: 74 Year
  Sex: Male

DRUGS (9)
  1. COUMADIN [Suspect]
     Active Substance: WARFARIN SODIUM
     Indication: TOXICITY TO VARIOUS AGENTS
     Route: 048
     Dates: start: 20170425, end: 20170425
  2. LAROXYL [Suspect]
     Active Substance: AMITRIPTYLINE
     Indication: TOXICITY TO VARIOUS AGENTS
  3. COUMADIN [Suspect]
     Active Substance: WARFARIN SODIUM
     Indication: TOXICITY TO VARIOUS AGENTS
  4. RAMIPRIL. [Suspect]
     Active Substance: RAMIPRIL
     Indication: ACCIDENTAL POISONING
     Route: 048
     Dates: start: 20170425, end: 20170425
  5. TARGIN [Suspect]
     Active Substance: NALOXONE HYDROCHLORIDE\OXYCODONE HYDROCHLORIDE
     Indication: TOXICITY TO VARIOUS AGENTS
     Route: 048
     Dates: start: 20170425, end: 20170425
  6. LAROXYL [Suspect]
     Active Substance: AMITRIPTYLINE
     Indication: TOXICITY TO VARIOUS AGENTS
     Route: 048
     Dates: start: 20170425, end: 20170425
  7. LORAZEPAM. [Suspect]
     Active Substance: LORAZEPAM
     Indication: TOXICITY TO VARIOUS AGENTS
     Route: 048
     Dates: start: 20170425, end: 20170425
  8. TARGIN [Suspect]
     Active Substance: NALOXONE HYDROCHLORIDE\OXYCODONE HYDROCHLORIDE
     Indication: TOXICITY TO VARIOUS AGENTS
  9. LORAZEPAM. [Interacting]
     Active Substance: LORAZEPAM
     Indication: TOXICITY TO VARIOUS AGENTS

REACTIONS (2)
  - Sopor [Unknown]
  - Toxicity to various agents [Recovered/Resolved]

NARRATIVE: CASE EVENT DATE: 20170425
